FAERS Safety Report 4693218-4 (Version None)
Quarter: 2005Q2

REPORT INFORMATION
  Report Type: 
  Country: None (occurrence: None)
  Receive Date: 20050617
  Receipt Date: 20050608
  Transmission Date: 20051028
  Serious: Yes (Death)
  Sender: FDA-Public Use
  Company Number: JP-JNJFOC-20050300573

PATIENT
  Sex: Male
  Weight: 46 kg

DRUGS (15)
  1. REMICADE [Suspect]
     Route: 042
  2. REMICADE [Suspect]
     Indication: CROHN'S DISEASE
     Route: 042
  3. ALKERAN [Suspect]
     Indication: DRUG USE FOR UNKNOWN INDICATION
  4. PREDONINE [Concomitant]
     Indication: CROHN'S DISEASE
     Route: 049
  5. PENTASA [Concomitant]
     Indication: CROHN'S DISEASE
     Route: 049
  6. SALAZOPYRIN [Concomitant]
     Indication: CROHN'S DISEASE
     Route: 049
  7. MODACIN [Concomitant]
     Indication: BACTERIAL INFECTION
     Route: 042
  8. MODACIN [Concomitant]
     Route: 042
  9. FUNGARD [Concomitant]
     Indication: FUNGAL INFECTION
     Route: 042
  10. FOSCAVIR [Concomitant]
     Route: 042
  11. OMEGACIN [Concomitant]
     Route: 042
  12. CARBENIN [Concomitant]
  13. CARBENIN [Concomitant]
  14. MINOPEN [Concomitant]
  15. FOSMICIN S [Concomitant]

REACTIONS (4)
  - DRUG INTERACTION [None]
  - PANCREATITIS ACUTE [None]
  - SEPSIS [None]
  - STENOTROPHOMONAS INFECTION [None]
